FAERS Safety Report 5567430-6 (Version None)
Quarter: 2007Q4

REPORT INFORMATION
  Report Type: 
  Country: None (occurrence: None)
  Receive Date: 20071214
  Receipt Date: 20071204
  Transmission Date: 20080405
  Serious: Yes (Death, Hospitalization)
  Sender: FDA-Public Use
  Company Number: TPH2007A00756

PATIENT
  Age: 68 Year
  Sex: Male

DRUGS (8)
  1. COMPETACT [Suspect]
     Indication: DIABETES MELLITUS
     Dosage: 15 MG PIOGLITAZONE AND 850 MG METFORMIN
     Route: 048
     Dates: start: 20070703, end: 20071123
  2. ASPIRIN [Concomitant]
  3. OLMESARTAN MEDOXOMIL [Concomitant]
  4. ALDACTONE [Concomitant]
  5. PLAVIX [Concomitant]
  6. CONCOR                  (BISPOROLOL FUMARATE) [Concomitant]
  7. ZOCOR [Concomitant]
  8. LASIX [Concomitant]

REACTIONS (3)
  - CARDIAC FAILURE [None]
  - CONDITION AGGRAVATED [None]
  - RENAL FAILURE [None]
